FAERS Safety Report 9458793 (Version 2)
Quarter: 2014Q4

REPORT INFORMATION
  Report Type: Spontaneous
  Country: US (occurrence: US)
  Receive Date: 20130814
  Receipt Date: 20141016
  Transmission Date: 20150529
  Serious: Yes (Hospitalization, Other)
  Sender: FDA-Public Use
  Company Number: US-GLAXOSMITHKLINE-A0870855A

PATIENT
  Sex: Male

DRUGS (2)
  1. ROSIGLITAZONE MALEATE. [Suspect]
     Active Substance: ROSIGLITAZONE MALEATE
     Indication: DIABETES MELLITUS
     Route: 048
     Dates: start: 200112, end: 200511
  2. AVANDIA [Suspect]
     Active Substance: ROSIGLITAZONE MALEATE
     Indication: DIABETES MELLITUS
     Dosage: UNK UNK, UNK
     Route: 048
     Dates: start: 200506, end: 200801

REACTIONS (2)
  - Myocardial infarction [Recovered/Resolved]
  - Coronary artery disease [Unknown]
